FAERS Safety Report 10585412 (Version 8)
Quarter: 2021Q4

REPORT INFORMATION
  Report Type: Report from Study
  Country: JP (occurrence: JP)
  Receive Date: 20141114
  Receipt Date: 20211202
  Transmission Date: 20220304
  Serious: Yes (Hospitalization, Other)
  Sender: FDA-Public Use
  Company Number: JP-002147023-PHHY2014JP145613

PATIENT

DRUGS (1)
  1. RUXOLITINIB [Suspect]
     Active Substance: RUXOLITINIB
     Indication: Myelofibrosis
     Dosage: 5 MG, BID
     Route: 048
     Dates: start: 20141028, end: 20141103

REACTIONS (7)
  - Cholangitis [Recovering/Resolving]
  - Cholecystitis [Recovering/Resolving]
  - Lymphocyte count decreased [Unknown]
  - Hepatic failure [Recovering/Resolving]
  - Jaundice cholestatic [Recovering/Resolving]
  - Myelofibrosis [Unknown]
  - Malignant neoplasm progression [Unknown]

NARRATIVE: CASE EVENT DATE: 20141102
